FAERS Safety Report 6742814-9 (Version None)
Quarter: 2010Q2

REPORT INFORMATION
  Report Type: 
  Country: None (occurrence: None)
  Receive Date: 20100525
  Receipt Date: 20100517
  Transmission Date: 20101027
  Serious: Yes (Other)
  Sender: FDA-Public Use
  Company Number: 8054282

PATIENT
  Sex: Female

DRUGS (11)
  1. KEPPRA [Suspect]
     Indication: EPILEPSY
     Dosage: (1000 MG QD, DOSE FREQ. : DAILY), (1000 MG QD, DOSE FREQ. : DAILY)
     Dates: end: 20091004
  2. KEPPRA [Suspect]
     Indication: EPILEPSY
     Dosage: (1000 MG QD, DOSE FREQ. : DAILY), (1000 MG QD, DOSE FREQ. : DAILY)
     Dates: start: 20091105
  3. KEPPRA [Suspect]
     Indication: EPILEPSY
     Dosage: (100 MG QD)
     Dates: start: 20091005, end: 20091104
  4. FOLIC ACID [Suspect]
     Indication: PREGNANCY
     Dosage: (400 UG BID ORAL)
     Route: 048
  5. PRENATAL VITAMINS /01549301/ [Concomitant]
  6. DOCOSAHEXANOIC ACID [Concomitant]
  7. PEPCID [Concomitant]
  8. VITAMIN A [Concomitant]
  9. ASPIRIN [Concomitant]
  10. IGG PURISSIMUS [Concomitant]
  11. TOPAMAX [Concomitant]

REACTIONS (8)
  - COMPLEX PARTIAL SEIZURES [None]
  - DRUG EXPOSURE DURING PREGNANCY [None]
  - PETIT MAL EPILEPSY [None]
  - POSTPARTUM HAEMORRHAGE [None]
  - POSTPARTUM SEPSIS [None]
  - PREGNANCY [None]
  - STARING [None]
  - VITAMIN D DEFICIENCY [None]
